FAERS Safety Report 7535792-6 (Version None)
Quarter: 2011Q2

REPORT INFORMATION
  Report Type: 
  Country: None (occurrence: None)
  Receive Date: 20110609
  Receipt Date: 20110527
  Transmission Date: 20111010
  Serious: Yes (Other)
  Sender: FDA-Public Use
  Company Number: JP-JNJFOC-20110511789

PATIENT
  Sex: Male

DRUGS (10)
  1. TANATRIL [Concomitant]
     Indication: PRODUCT USED FOR UNKNOWN INDICATION
     Route: 048
     Dates: start: 20091210
  2. NIPOLAZIN [Concomitant]
     Indication: PRODUCT USED FOR UNKNOWN INDICATION
     Route: 048
     Dates: start: 20101209
  3. OLOPATADINE HCL [Concomitant]
     Indication: PRODUCT USED FOR UNKNOWN INDICATION
     Route: 048
     Dates: start: 20101209
  4. CALSLOT [Concomitant]
     Indication: PRODUCT USED FOR UNKNOWN INDICATION
     Route: 048
     Dates: start: 20091210
  5. ROCEPHIN [Concomitant]
     Indication: PRODUCT USED FOR UNKNOWN INDICATION
     Route: 041
     Dates: start: 20110513, end: 20110513
  6. GLYBURIDE [Concomitant]
     Indication: PRODUCT USED FOR UNKNOWN INDICATION
     Route: 048
     Dates: start: 20091210
  7. METFORMIN HCL [Concomitant]
     Indication: PRODUCT USED FOR UNKNOWN INDICATION
     Route: 048
     Dates: start: 20091210
  8. FAMOTIDINE [Concomitant]
     Indication: PRODUCT USED FOR UNKNOWN INDICATION
     Route: 048
     Dates: start: 20091210
  9. LEVOFLOXACIN [Suspect]
     Indication: LYMPHADENITIS
     Route: 048
     Dates: start: 20110513, end: 20110513
  10. MEFENAMIC ACID [Suspect]
     Indication: LYMPHADENITIS
     Route: 048
     Dates: start: 20110513, end: 20110513

REACTIONS (3)
  - OXYGEN SATURATION DECREASED [None]
  - DYSPNOEA [None]
  - TONGUE OEDEMA [None]
